FAERS Safety Report 7375858-7 (Version None)
Quarter: 2011Q1

REPORT INFORMATION
  Report Type: 
  Country: None (occurrence: None)
  Receive Date: 20110325
  Receipt Date: 20110322
  Transmission Date: 20110831
  Serious: Yes (Life-Threatening, Hospitalization)
  Sender: FDA-Public Use
  Company Number: A0919012B

PATIENT
  Sex: Female

DRUGS (11)
  1. ALENDRONIC ACID [Concomitant]
     Indication: OSTEOPOROSIS
     Dosage: 10MG WEEKLY
     Route: 048
  2. PAZOPANIB [Suspect]
     Indication: RENAL CELL CARCINOMA
     Dosage: 800MG PER DAY
     Route: 048
     Dates: start: 20100912
  3. PARACETAMOL [Concomitant]
     Indication: PAIN
     Route: 048
  4. SUNITINIB [Suspect]
     Indication: RENAL CELL CARCINOMA
     Dosage: 50MG PER DAY
     Route: 048
     Dates: start: 20100901
  5. MORPHINE [Concomitant]
     Indication: PAIN
     Route: 062
  6. CREON [Concomitant]
     Indication: PANCREATIC INSUFFICIENCY
     Route: 048
  7. LISINOPRIL [Concomitant]
     Indication: HYPERTENSION
     Dosage: 2.5MG TWICE PER DAY
     Route: 048
     Dates: start: 20110224
  8. ASPIRIN [Concomitant]
     Route: 048
  9. LANSOPRAZOLE [Concomitant]
     Dosage: 30MG PER DAY
     Route: 048
  10. PAZOPANIB [Suspect]
     Dosage: 800MG PER DAY
     Route: 048
     Dates: start: 20100731
  11. BISOPROLOL [Concomitant]
     Dosage: 2.5MG PER DAY
     Route: 048
     Dates: start: 20100901

REACTIONS (1)
  - ANGINA PECTORIS [None]
